FAERS Safety Report 4542613-2 (Version None)
Quarter: 2004Q4

REPORT INFORMATION
  Report Type: 
  Country: None (occurrence: None)
  Receive Date: 20041230
  Receipt Date: 20041223
  Transmission Date: 20050328
  Serious: Yes (Death, Hospitalization)
  Sender: FDA-Public Use
  Company Number: US-MERCK-0412USA02880

PATIENT
  Sex: Female

DRUGS (1)
  1. VIOXX [Suspect]
     Route: 048

REACTIONS (6)
  - ARTERIAL INJURY [None]
  - CHEST PAIN [None]
  - COMA [None]
  - DEATH [None]
  - HAEMODYNAMIC INSTABILITY [None]
  - LACERATION [None]
